FAERS Safety Report 8380674-3 (Version None)
Quarter: 2012Q2

REPORT INFORMATION
  Report Type: 
  Country: None (occurrence: None)
  Receive Date: 20120523
  Receipt Date: 20011003
  Transmission Date: 20120825
  Serious: Yes (Death, Life-Threatening)
  Sender: FDA-Public Use
  Company Number: US-ROCHE-268735

PATIENT
  Age: 9 Year
  Sex: Female
  Weight: 100 kg

DRUGS (1)
  1. VERSED [Suspect]
     Indication: SEDATION
     Dosage: UNIT DOSE=5 MG/ML FORM STRENGTH=5 MG/ML
     Route: 042
     Dates: start: 20010915, end: 20010916

REACTIONS (2)
  - BRAIN DEATH [None]
  - CEREBROVASCULAR ACCIDENT [None]
